FAERS Safety Report 5625470-2 (Version None)
Quarter: 2008Q1

REPORT INFORMATION
  Report Type: 
  Country: None (occurrence: None)
  Receive Date: 20080208
  Receipt Date: 20080204
  Transmission Date: 20080703
  Serious: Yes (Other)
  Sender: FDA-Public Use
  Company Number: 2007338403

PATIENT
  Age: 35 Year
  Sex: Male

DRUGS (2)
  1. BENGAY ULTRA STRENGTH PATCH (MENTHOL) [Suspect]
     Indication: MUSCULOSKELETAL PAIN
     Dosage: 1 PATCH FOR A FEW HOURS ONCE, TOPICAL
     Route: 061
     Dates: start: 20071214, end: 20071214
  2. ZOCOR [Concomitant]

REACTIONS (3)
  - APPLICATION SITE RASH [None]
  - DRY SKIN [None]
  - THERMAL BURN [None]
